FAERS Safety Report 5173150-2 (Version None)
Quarter: 2006Q4

REPORT INFORMATION
  Report Type: 
  Country: None (occurrence: None)
  Receive Date: 20061207
  Receipt Date: 20061207
  Transmission Date: 20070319
  Serious: Yes (Life-Threatening, Hospitalization)
  Sender: FDA-Public Use
  Company Number: None

PATIENT
  Age: 48 Year
  Sex: Male
  Weight: 77.1115 kg

DRUGS (4)
  1. ATIVAN [Suspect]
     Indication: ANXIETY
     Dosage: 2MG/IM ONE TIME DOSE IM
     Route: 030
     Dates: start: 20040617, end: 20040617
  2. ATIVAN [Suspect]
     Indication: PSYCHOMOTOR HYPERACTIVITY
     Dosage: 2MG/IM ONE TIME DOSE IM
     Route: 030
     Dates: start: 20040617, end: 20040617
  3. ATIVAN [Suspect]
     Indication: TACHYCARDIA
     Dosage: 2MG/IM ONE TIME DOSE IM
     Route: 030
     Dates: start: 20040617, end: 20040617
  4. ATIVAN [Concomitant]

REACTIONS (2)
  - AMNESIA [None]
  - CONFUSIONAL STATE [None]
